FAERS Safety Report 22860379 (Version 2)
Quarter: 2023Q4

REPORT INFORMATION
  Report Type: Spontaneous
  Country: BR (occurrence: BR)
  Receive Date: 20230824
  Receipt Date: 20231018
  Transmission Date: 20240110
  Serious: No
  Sender: FDA-Public Use
  Company Number: BR-PFIZER INC-PV202300105863

PATIENT
  Age: 61 Year
  Sex: Male
  Weight: 61 kg

DRUGS (8)
  1. GENOTROPIN [Suspect]
     Active Substance: SOMATROPIN
     Indication: Hormone therapy
     Dosage: 0.1
     Dates: start: 20120611
  2. GENOTROPIN [Suspect]
     Active Substance: SOMATROPIN
     Indication: Hypopituitarism
     Dosage: 0.1 MG, 1X/DAY
     Route: 058
  3. NEBIDO [TESTOSTERONE] [Concomitant]
     Indication: Hypopituitarism
     Dosage: UNK
     Route: 042
     Dates: start: 2015
  4. CABERGOLINE [Concomitant]
     Active Substance: CABERGOLINE
     Indication: Hyperprolactinaemia
     Dosage: UNK
     Route: 048
     Dates: start: 2015
  5. CABERGOLINE [Concomitant]
     Active Substance: CABERGOLINE
     Indication: Hypopituitarism
  6. AMLODIPINE BESYLATE [Concomitant]
     Active Substance: AMLODIPINE BESYLATE
     Indication: Hypertension
     Dosage: UNK
     Route: 048
     Dates: start: 2008
  7. INDAPAMIDE [Concomitant]
     Active Substance: INDAPAMIDE
     Dosage: UNK
     Route: 048
     Dates: start: 2008
  8. PREDNISONE [Concomitant]
     Active Substance: PREDNISONE
     Indication: Renal failure
     Route: 048

REACTIONS (2)
  - Device mechanical issue [Unknown]
  - Poor quality device used [Unknown]
